FAERS Safety Report 11964607 (Version 1)
Quarter: 2016Q1

REPORT INFORMATION
  Report Type: Spontaneous
  Country: US (occurrence: US)
  Receive Date: 20160127
  Receipt Date: 20160127
  Transmission Date: 20160526
  Serious: Yes (Hospitalization)
  Sender: FDA-Public Use
  Company Number: US-009507513-1601USA009030

PATIENT
  Age: 60 Year
  Sex: Female

DRUGS (3)
  1. JANUMET [Suspect]
     Active Substance: METFORMIN HYDROCHLORIDE\SITAGLIPTIN PHOSPHATE
     Route: 048
  2. GLIPIZIDE. [Concomitant]
     Active Substance: GLIPIZIDE
  3. LEVEMIR [Concomitant]
     Active Substance: INSULIN DETEMIR

REACTIONS (7)
  - Diarrhoea [Unknown]
  - Cystitis noninfective [Unknown]
  - Pain in extremity [Unknown]
  - Asthenia [Unknown]
  - Myalgia [Unknown]
  - Blood potassium decreased [Unknown]
  - Bone pain [Unknown]

NARRATIVE: CASE EVENT DATE: 201509
